FAERS Safety Report 5703387-2 (Version None)
Quarter: 2008Q2

REPORT INFORMATION
  Report Type: 
  Country: None (occurrence: None)
  Receive Date: 20080411
  Receipt Date: 20080401
  Transmission Date: 20081010
  Serious: Yes (Hospitalization, Other)
  Sender: FDA-Public Use
  Company Number: US-PFIZER INC-2008026310

PATIENT
  Sex: Female
  Weight: 70.3 kg

DRUGS (5)
  1. CHANTIX [Suspect]
     Indication: SMOKING CESSATION THERAPY
     Route: 048
  2. ZOLOFT [Concomitant]
  3. ESTRACE [Concomitant]
  4. MONTELUKAST SODIUM [Concomitant]
  5. CELEBREX [Concomitant]

REACTIONS (6)
  - BRONCHITIS [None]
  - CHRONIC OBSTRUCTIVE PULMONARY DISEASE [None]
  - LUNG INFECTION [None]
  - OXYGEN SATURATION DECREASED [None]
  - PLEURISY [None]
  - SKIN IRRITATION [None]
